FAERS Safety Report 9717569 (Version 1)
Quarter: 2013Q4

REPORT INFORMATION
  Report Type: Spontaneous
  Country: US (occurrence: US)
  Receive Date: 20131127
  Receipt Date: 20131127
  Transmission Date: 20140711
  Serious: Yes (Hospitalization)
  Sender: FDA-Public Use
  Company Number: US-GILEAD-2009-0020857

PATIENT
  Sex: Female
  Weight: 58.97 kg

DRUGS (14)
  1. LETAIRIS [Suspect]
     Indication: PULMONARY ARTERIAL HYPERTENSION
     Route: 048
     Dates: start: 20090218
  2. REVATIO [Concomitant]
  3. COUMADIN [Concomitant]
  4. FLUTICASONE [Concomitant]
  5. PREDNISONE [Concomitant]
  6. DIAMOX [Concomitant]
  7. LOMOTIL [Concomitant]
  8. AMBIEN CR [Concomitant]
  9. LEXAPRO [Concomitant]
  10. PEPCID [Concomitant]
  11. MIACALCIN [Concomitant]
  12. CITRACAL PLUS [Concomitant]
  13. CALCIUM [Concomitant]
  14. VITAMIN E [Concomitant]

REACTIONS (1)
  - Fluid retention [Unknown]
